FAERS Safety Report 11375268 (Version 1)
Quarter: 2015Q3

REPORT INFORMATION
  Report Type: Report from Study
  Country: US (occurrence: US)
  Receive Date: 20150813
  Receipt Date: 20150813
  Transmission Date: 20151125
  Serious: Yes (Hospitalization, Other)
  Sender: FDA-Public Use
  Company Number: US-AMGEN-USASL2015081955

PATIENT
  Age: 65 Year
  Sex: Female

DRUGS (7)
  1. METFORMIN [Concomitant]
     Active Substance: METFORMIN HYDROCHLORIDE
     Dosage: UNK
  2. MELOXICAM. [Concomitant]
     Active Substance: MELOXICAM
     Dosage: FOR LAST 6 MONTHS
     Dates: start: 2015
  3. LYRICA [Concomitant]
     Active Substance: PREGABALIN
     Dosage: FOR 2 YEARS
     Dates: start: 2013
  4. INSULIN [Concomitant]
     Active Substance: INSULIN NOS
     Dosage: UNK
  5. METHYLPREDNISOLONE. [Concomitant]
     Active Substance: METHYLPREDNISOLONE
     Dosage: 4 MG DAILY FOR 6 YRS
     Dates: start: 2009
  6. ENBREL [Suspect]
     Active Substance: ETANERCEPT
     Indication: RHEUMATOID ARTHRITIS
     Dosage: 50 MG, QWK
     Route: 065
     Dates: start: 201411
  7. TYLENOL [Concomitant]
     Active Substance: ACETAMINOPHEN
     Dosage: 3 THREE TIMES A DAY

REACTIONS (9)
  - Hyperglycaemia [Unknown]
  - Hyperhidrosis [Unknown]
  - Thirst [Unknown]
  - Feeling hot [Unknown]
  - Pain [Unknown]
  - Polyuria [Unknown]
  - Cushing^s syndrome [Unknown]
  - Hypertension [Unknown]
  - Polydipsia [Unknown]
